FAERS Safety Report 7630718-9 (Version None)
Quarter: 2011Q3

REPORT INFORMATION
  Report Type: 
  Country: None (occurrence: None)
  Receive Date: 20110722
  Receipt Date: 20110715
  Transmission Date: 20111222
  Serious: Yes (Death)
  Sender: FDA-Public Use
  Company Number: US-MERCK-1107USA02091

PATIENT
  Age: 55 Year
  Sex: Male

DRUGS (1)
  1. FOSAMAX [Suspect]
     Route: 048
     Dates: start: 20010101

REACTIONS (3)
  - OESOPHAGEAL DISORDER [None]
  - DEATH [None]
  - GASTRIC DISORDER [None]
